FAERS Safety Report 8779427 (Version 1)
Quarter: 2012Q4

REPORT INFORMATION
  Report Type: 
  Country: US (occurrence: US)
  Receive Date: 20120912
  Receipt Date: 20120912
  Transmission Date: 20130627
  Serious: Yes (Life-Threatening, Hospitalization)
  Sender: FDA-Public Use
  Company Number: US-JNJFOC-20120811416

PATIENT
  Age: 79 Year
  Sex: Female
  Weight: 73 kg

DRUGS (7)
  1. XARELTO [Suspect]
     Indication: THROMBOSIS PROPHYLAXIS
     Route: 048
     Dates: start: 20120807, end: 20120809
  2. XARELTO [Suspect]
     Indication: KNEE ARTHROPLASTY
     Route: 048
     Dates: start: 20120807, end: 20120809
  3. EXELON [Concomitant]
  4. PRAVACHOL [Concomitant]
     Route: 048
  5. AMARYL [Concomitant]
     Route: 048
  6. CELEXA [Concomitant]
     Route: 048
  7. TOPROL XL [Concomitant]
     Route: 048

REACTIONS (1)
  - Pulmonary embolism [Recovering/Resolving]
